FAERS Safety Report 18142482 (Version 1)
Quarter: 2020Q3

REPORT INFORMATION
  Report Type: Spontaneous
  Country: DE (occurrence: DE)
  Receive Date: 20200813
  Receipt Date: 20200813
  Transmission Date: 20201103
  Serious: Yes (Other)
  Sender: FDA-Public Use
  Company Number: DE-TEVA-2020-DE-1813032

PATIENT
  Age: 66 Year
  Sex: Male
  Weight: 85 kg

DRUGS (1)
  1. IRBESARTAN COMP. RATIOPHARM 300 MG/25 MG FILMTABLETTEN [Suspect]
     Active Substance: HYDROCHLOROTHIAZIDE\IRBESARTAN
     Indication: HYPERTENSION
     Dosage: 1 DOSAGE FORMS
     Route: 048
     Dates: start: 2018, end: 20200617

REACTIONS (2)
  - Blood pressure increased [Recovered/Resolved]
  - Product quality issue [Recovered/Resolved]

NARRATIVE: CASE EVENT DATE: 20200515
